FAERS Safety Report 15729434 (Version 1)
Quarter: 2018Q4

REPORT INFORMATION
  Report Type: Spontaneous
  Country: JP (occurrence: JP)
  Receive Date: 20181217
  Receipt Date: 20181217
  Transmission Date: 20190205
  Serious: Yes (Other)
  Sender: FDA-Public Use
  Company Number: JP-PFIZER INC-2018513347

PATIENT
  Age: 58 Year
  Sex: Female

DRUGS (3)
  1. METHYLPREDNISOLONE. [Suspect]
     Active Substance: METHYLPREDNISOLONE
     Indication: RHEUMATOID ARTHRITIS
     Dosage: 4 MG, UNK
     Route: 048
  2. METHYLPREDNISOLONE. [Suspect]
     Active Substance: METHYLPREDNISOLONE
     Indication: SJOGREN^S SYNDROME
  3. TAMOXIFEN [Suspect]
     Active Substance: TAMOXIFEN
     Indication: POSTOPERATIVE CARE
     Dosage: 20 MG, UNK
     Route: 048

REACTIONS (2)
  - Cerebral artery embolism [Unknown]
  - Cerebral infarction [Unknown]
